FAERS Safety Report 19895698 (Version 1)
Quarter: 2021Q3

REPORT INFORMATION
  Report Type: Spontaneous
  Country: US (occurrence: US)
  Receive Date: 20210929
  Receipt Date: 20210929
  Transmission Date: 20211014
  Serious: No
  Sender: FDA-Public Use
  Company Number: US-ELI_LILLY_AND_COMPANY-US202109011141

PATIENT
  Sex: Female

DRUGS (1)
  1. TRULICITY [Suspect]
     Active Substance: DULAGLUTIDE
     Indication: DIABETES MELLITUS
     Dosage: 0.75 MG, UNKNOWN
     Route: 058
     Dates: start: 202109

REACTIONS (6)
  - Dizziness [Unknown]
  - Malaise [Unknown]
  - Illness [Unknown]
  - Hypoaesthesia oral [Unknown]
  - Palpitations [Unknown]
  - Pruritus [Unknown]
